FAERS Safety Report 13552631 (Version 2)
Quarter: 2017Q2

REPORT INFORMATION
  Report Type: Report from Study
  Country: US (occurrence: US)
  Receive Date: 20170517
  Receipt Date: 20170620
  Transmission Date: 20170830
  Serious: Yes (Hospitalization, Other)
  Sender: FDA-Public Use
  Company Number: US-GILEAD-2017-0273051

PATIENT
  Age: 60 Year
  Sex: Female

DRUGS (2)
  1. WARFARIN [Suspect]
     Active Substance: WARFARIN
     Indication: PRODUCT USED FOR UNKNOWN INDICATION
     Route: 065
  2. AMBRISENTAN [Suspect]
     Active Substance: AMBRISENTAN
     Indication: PULMONARY ARTERIAL HYPERTENSION
     Dosage: 10 MG, QD
     Route: 048
     Dates: start: 20140729

REACTIONS (12)
  - Loss of consciousness [Unknown]
  - Hepatic failure [Unknown]
  - Retching [Unknown]
  - Coagulopathy [Unknown]
  - Unevaluable event [Unknown]
  - Thrombocytopenia [Unknown]
  - Traumatic liver injury [Unknown]
  - Vomiting [Unknown]
  - Gastroenteritis [Unknown]
  - Dyspnoea exertional [Unknown]
  - Subdural haemorrhage [Unknown]
  - Abdominal distension [Unknown]

NARRATIVE: CASE EVENT DATE: 20170509
